FAERS Safety Report 13991235 (Version 2)
Quarter: 2017Q3

REPORT INFORMATION
  Report Type: Report from Study
  Country: GB (occurrence: GB)
  Receive Date: 20170920
  Receipt Date: 20170925
  Transmission Date: 20171128
  Serious: Yes (Disabling)
  Sender: FDA-Public Use
  Company Number: PHFR2017GB007834

PATIENT
  Age: 61 Year
  Sex: Male

DRUGS (1)
  1. SANDOSTATIN LAR DEPOT [Suspect]
     Active Substance: OCTREOTIDE ACETATE
     Indication: NEUROENDOCRINE TUMOUR
     Dosage: 50 MG, UNK
     Route: 065
     Dates: start: 201706

REACTIONS (3)
  - Diarrhoea [Recovering/Resolving]
  - Flushing [Recovering/Resolving]
  - Weight decreased [Recovering/Resolving]

NARRATIVE: CASE EVENT DATE: 201708
